FAERS Safety Report 7074966-8 (Version None)
Quarter: 2010Q4

REPORT INFORMATION
  Report Type: 
  Country: None (occurrence: None)
  Receive Date: 20101029
  Receipt Date: 20100224
  Transmission Date: 20110411
  Serious: Yes (Other)
  Sender: FDA-Public Use
  Company Number: US-WYE-H13779510

PATIENT
  Age: 79 Year
  Sex: Female
  Weight: 73.55 kg

DRUGS (1)
  1. ADVIL PM [Suspect]
     Indication: INSOMNIA
     Dosage: 2 CAPLETS X 1
     Route: 048
     Dates: start: 20090101, end: 20090101

REACTIONS (1)
  - ANAPHYLACTIC SHOCK [None]
